FAERS Safety Report 7291399-X (Version None)
Quarter: 2011Q1

REPORT INFORMATION
  Report Type: 
  Country: None (occurrence: None)
  Receive Date: 20110214
  Receipt Date: 20110208
  Transmission Date: 20110831
  Serious: Yes (Death, Hospitalization, Other)
  Sender: FDA-Public Use
  Company Number: B0698514A

PATIENT
  Sex: Male

DRUGS (17)
  1. LASIX [Concomitant]
     Route: 065
  2. CRESTOR [Concomitant]
     Route: 065
  3. OFLOCET [Suspect]
     Indication: POSTOPERATIVE CARE
     Route: 042
     Dates: start: 20101127
  4. BRISTOPEN [Suspect]
     Indication: POSTOPERATIVE CARE
     Route: 042
     Dates: start: 20101127
  5. CARDENSIEL [Concomitant]
     Route: 065
  6. CALCIDIA [Concomitant]
     Route: 065
  7. RENAGEL [Concomitant]
     Route: 065
  8. PREVISCAN [Suspect]
     Route: 048
     Dates: start: 20101125, end: 20101201
  9. ROCALTROL [Concomitant]
     Route: 065
  10. DAFALGAN [Concomitant]
     Route: 065
  11. AUGMENTIN [Suspect]
     Indication: POSTOPERATIVE CARE
     Route: 042
     Dates: start: 20101127
  12. COLCHIMAX [Suspect]
     Route: 048
     Dates: start: 20101127
  13. SPECIAFOLDINE [Concomitant]
     Route: 065
  14. GENTAMICIN [Suspect]
     Indication: POSTOPERATIVE CARE
     Route: 042
     Dates: start: 20101127
  15. KARDEGIC [Concomitant]
     Route: 065
  16. DIALYSIS [Concomitant]
  17. RAMIPRIL [Concomitant]
     Route: 065

REACTIONS (4)
  - HAEMOTHORAX [None]
  - INTERNATIONAL NORMALISED RATIO INCREASED [None]
  - SEPTIC SHOCK [None]
  - RESPIRATORY DISTRESS [None]
